FAERS Safety Report 11363214 (Version 1)
Quarter: 2015Q3

REPORT INFORMATION
  Report Type: Spontaneous
  Country: US (occurrence: None)
  Receive Date: 20150807
  Receipt Date: 20150807
  Transmission Date: 20151125
  Serious: Yes (Other)
  Sender: FDA-Public Use
  Company Number: IE-SEPTODONT-201502944

PATIENT
  Age: 9 Year
  Sex: Female

DRUGS (2)
  1. XYLONOR [Suspect]
     Active Substance: CETRIMIDE\LIDOCAINE
     Indication: LOCAL ANAESTHESIA
     Route: 061
     Dates: start: 20150625
  2. LIGNOSPAN SPECIAL [Suspect]
     Active Substance: EPINEPHRINE BITARTRATE\LIDOCAINE HYDROCHLORIDE
     Indication: LOCAL ANAESTHESIA
     Dosage: 2.2 ML TOTAL
     Route: 004
     Dates: start: 20150625

REACTIONS (2)
  - Erythema [None]
  - Swelling face [None]

NARRATIVE: CASE EVENT DATE: 20150625
